FAERS Safety Report 22604307 (Version 1)
Quarter: 2023Q2

REPORT INFORMATION
  Report Type: Spontaneous
  Country: US (occurrence: US)
  Receive Date: 20230615
  Receipt Date: 20230615
  Transmission Date: 20230722
  Serious: Yes (Death, Other)
  Sender: FDA-Public Use
  Company Number: US-GLAXOSMITHKLINE-US2023083080

PATIENT

DRUGS (1)
  1. MEPRON [Suspect]
     Active Substance: ATOVAQUONE
     Indication: Product used for unknown indication
     Dosage: UNK

REACTIONS (1)
  - Cardiac arrest [Fatal]
